FAERS Safety Report 16396459 (Version 3)
Quarter: 2019Q2

REPORT INFORMATION
  Report Type: Spontaneous
  Country: US (occurrence: US)
  Receive Date: 20190605
  Receipt Date: 20190612
  Transmission Date: 20190711
  Serious: No
  Sender: FDA-Public Use
  Company Number: US-SHIRE-US201918152

PATIENT
  Sex: Female

DRUGS (1)
  1. XIIDRA [Suspect]
     Active Substance: LIFITEGRAST
     Indication: EYE PRURITUS
     Dosage: UNK
     Route: 047
     Dates: start: 2019

REACTIONS (8)
  - Product container issue [Unknown]
  - Inappropriate schedule of product administration [Unknown]
  - Eye movement disorder [Unknown]
  - Arthritis [Unknown]
  - Knee deformity [Unknown]
  - Eye pruritus [Recovering/Resolving]
  - Eye pain [Unknown]
  - Frustration tolerance decreased [Unknown]

NARRATIVE: CASE EVENT DATE: 2019
